FAERS Safety Report 19235333 (Version 2)
Quarter: 2021Q2

REPORT INFORMATION
  Report Type: Spontaneous
  Country: US (occurrence: US)
  Receive Date: 20210510
  Receipt Date: 20210510
  Transmission Date: 20210717
  Serious: Yes (Other)
  Sender: FDA-Public Use
  Company Number: US-SA-2021SA140695

PATIENT
  Age: 44 Year
  Sex: Male

DRUGS (3)
  1. ADMELOG [Concomitant]
     Active Substance: INSULIN LISPRO
  2. LANTUS [Suspect]
     Active Substance: INSULIN GLARGINE
     Dosage: 22 IU, QD
  3. LANTUS [Suspect]
     Active Substance: INSULIN GLARGINE
     Indication: TYPE 1 DIABETES MELLITUS
     Dosage: 30 IU, QD
     Dates: start: 2001

REACTIONS (3)
  - Diabetes mellitus inadequate control [Unknown]
  - Therapeutic response decreased [Unknown]
  - Product storage error [Unknown]
